FAERS Safety Report 9648853 (Version 1)
Quarter: 2013Q4

REPORT INFORMATION
  Report Type: Spontaneous
  Country: US (occurrence: None)
  Receive Date: 20131025
  Receipt Date: 20131025
  Transmission Date: 20140711
  Serious: Yes (Disabling)
  Sender: FDA-Public Use
  Company Number: None

PATIENT
  Age: 63 Year
  Sex: Female
  Weight: 72.58 kg

DRUGS (1)
  1. LEVAQUIN [Suspect]
     Indication: SINUSITIS
     Route: 042
     Dates: start: 20081023, end: 20081110

REACTIONS (9)
  - Myalgia [None]
  - Arthralgia [None]
  - Muscle atrophy [None]
  - Cognitive disorder [None]
  - Neuropathy peripheral [None]
  - Tendonitis [None]
  - Macular degeneration [None]
  - Mitochondrial toxicity [None]
  - Dysstasia [None]
